FAERS Safety Report 5582841-0 (Version None)
Quarter: 2008Q1

REPORT INFORMATION
  Report Type: 
  Country: None (occurrence: None)
  Receive Date: 20080107
  Receipt Date: 20071218
  Transmission Date: 20080703
  Serious: Yes (Hospitalization)
  Sender: FDA-Public Use
  Company Number: US-RANBAXY-2007US-07553

PATIENT

DRUGS (7)
  1. CLARITHROMYCIN [Suspect]
     Indication: COLITIS
     Dosage: 500 MG,
     Dates: start: 20070313, end: 20070321
  2. LOPRESSER [Concomitant]
     Indication: DRUG USE FOR UNKNOWN INDICATION
  3. SULAR [Concomitant]
     Indication: DRUG USE FOR UNKNOWN INDICATION
  4. LASIX [Concomitant]
     Indication: DRUG USE FOR UNKNOWN INDICATION
  5. SLO-MAG [Concomitant]
     Indication: DRUG USE FOR UNKNOWN INDICATION
  6. TRAMADOL HCL [Concomitant]
     Indication: DRUG USE FOR UNKNOWN INDICATION
  7. REQUIP [Concomitant]
     Indication: DRUG USE FOR UNKNOWN INDICATION

REACTIONS (7)
  - DIARRHOEA [None]
  - DYSGEUSIA [None]
  - EATING DISORDER [None]
  - GLOSSODYNIA [None]
  - ORAL FUNGAL INFECTION [None]
  - STOMATITIS [None]
  - SWOLLEN TONGUE [None]
